FAERS Safety Report 20576197 (Version 3)
Quarter: 2023Q4

REPORT INFORMATION
  Report Type: Spontaneous
  Country: US (occurrence: US)
  Receive Date: 20220310
  Receipt Date: 20231113
  Transmission Date: 20240109
  Serious: Yes (Hospitalization, Other)
  Sender: FDA-Public Use
  Company Number: US-GILEAD-2022-0572967

PATIENT
  Sex: Male
  Weight: 81.633 kg

DRUGS (32)
  1. TRUVADA [Suspect]
     Active Substance: EMTRICITABINE\TENOFOVIR DISOPROXIL FUMARATE
     Indication: Prophylaxis against HIV infection
     Dosage: UNK
     Route: 048
     Dates: end: 202007
  2. METFORMIN [Concomitant]
     Active Substance: METFORMIN HYDROCHLORIDE
  3. CIPROFLOXACIN [Concomitant]
     Active Substance: CIPROFLOXACIN
  4. ATORVASTATIN [Concomitant]
     Active Substance: ATORVASTATIN
  5. ACYCLOVIR [Concomitant]
     Active Substance: ACYCLOVIR
  6. THIAMINE [Concomitant]
     Active Substance: THIAMINE
  7. NALTREXONE [Concomitant]
     Active Substance: NALTREXONE
  8. LISINOPRIL [Concomitant]
     Active Substance: LISINOPRIL
  9. DULOXETINE [Concomitant]
     Active Substance: DULOXETINE
  10. AMLODIPINE [Concomitant]
     Active Substance: AMLODIPINE BESYLATE
  11. HYDROCHLOROTHIAZIDE [Concomitant]
     Active Substance: HYDROCHLOROTHIAZIDE
  12. FINASTERIDE [Concomitant]
     Active Substance: FINASTERIDE
  13. OXYCODONE [Concomitant]
     Active Substance: OXYCODONE
  14. GABAPENTIN [Concomitant]
     Active Substance: GABAPENTIN
  15. AZITHROMYCIN [Concomitant]
     Active Substance: AZITHROMYCIN
  16. ONDANSETRON [Concomitant]
     Active Substance: ONDANSETRON
  17. HYDROXYZINE [Concomitant]
     Active Substance: HYDROXYZINE HYDROCHLORIDE
  18. ADVAIR HFA [Concomitant]
     Active Substance: FLUTICASONE PROPIONATE\SALMETEROL XINAFOATE
  19. TACROLIMUS [Concomitant]
     Active Substance: TACROLIMUS
  20. FLUTICASONE [Concomitant]
     Active Substance: FLUTICASONE
  21. ZOLPIDEM [Concomitant]
     Active Substance: ZOLPIDEM TARTRATE
  22. METRONIDAZOLE [Concomitant]
     Active Substance: METRONIDAZOLE
  23. EUCRISA [Concomitant]
     Active Substance: CRISABOROLE
  24. DIAZEPAM [Concomitant]
     Active Substance: DIAZEPAM
  25. TIZANIDINE [Concomitant]
     Active Substance: TIZANIDINE
  26. FLUOROURACIL [Concomitant]
     Active Substance: FLUOROURACIL
  27. DOXYCYCLINE [Concomitant]
     Active Substance: DOXYCYCLINE
  28. CARISOPRODOL [Concomitant]
     Active Substance: CARISOPRODOL
  29. IBUPROFEN [Concomitant]
     Active Substance: IBUPROFEN
  30. CALCIUM [Concomitant]
     Active Substance: CALCIUM
  31. TYLENOL [Concomitant]
     Active Substance: ACETAMINOPHEN
  32. TRIAMCINOLONE [Concomitant]
     Active Substance: TRIAMCINOLONE

REACTIONS (15)
  - Concussion [Not Recovered/Not Resolved]
  - Acute kidney injury [Not Recovered/Not Resolved]
  - Upper limb fracture [Not Recovered/Not Resolved]
  - Renal injury [Unknown]
  - Renal failure [Unknown]
  - Syncope [Unknown]
  - Emotional distress [Not Recovered/Not Resolved]
  - Anhedonia [Not Recovered/Not Resolved]
  - Anxiety [Not Recovered/Not Resolved]
  - Pain [Not Recovered/Not Resolved]
  - Anaemia [Not Recovered/Not Resolved]
  - Fatigue [Unknown]
  - Amnesia [Unknown]
  - Asthenia [Unknown]
  - Periarthritis [Unknown]

NARRATIVE: CASE EVENT DATE: 20120101
